FAERS Safety Report 13485531 (Version 1)
Quarter: 2017Q2

REPORT INFORMATION
  Report Type: Report from Study
  Country: US (occurrence: US)
  Receive Date: 20170426
  Receipt Date: 20170426
  Transmission Date: 20170830
  Serious: No
  Sender: FDA-Public Use
  Company Number: US-AMGEN-USASL2017057408

PATIENT
  Sex: Female

DRUGS (1)
  1. CORLANOR [Suspect]
     Active Substance: IVABRADINE HYDROCHLORIDE
     Indication: AUTONOMIC NERVOUS SYSTEM IMBALANCE
     Dosage: 5 MG, BID
     Route: 065
     Dates: start: 201701

REACTIONS (6)
  - Dizziness [Recovered/Resolved]
  - Visual impairment [Recovered/Resolved]
  - Heart rate decreased [Unknown]
  - Off label use [Unknown]
  - Hypotension [Unknown]
  - Sensitisation [Recovered/Resolved]

NARRATIVE: CASE EVENT DATE: 2017
